FAERS Safety Report 11741989 (Version 1)
Quarter: 2015Q4

REPORT INFORMATION
  Report Type: Spontaneous
  Country: US (occurrence: None)
  Receive Date: 20151113
  Receipt Date: 20151113
  Transmission Date: 20160304
  Serious: No
  Sender: FDA-Public Use
  Company Number: None

PATIENT
  Age: 52 Year
  Sex: Male

DRUGS (1)
  1. SEROSTIM [Suspect]
     Active Substance: SOMATROPIN
     Indication: CACHEXIA
     Route: 058
     Dates: start: 20150827

REACTIONS (11)
  - Chest pain [None]
  - Mood altered [None]
  - Depression [None]
  - Pain in extremity [None]
  - Dizziness [None]
  - Loss of consciousness [None]
  - Weight increased [None]
  - Heart rate irregular [None]
  - Blood pressure increased [None]
  - Thyroid disorder [None]
  - Diabetes mellitus [None]
